FAERS Safety Report 8585041-5 (Version None)
Quarter: 2012Q3

REPORT INFORMATION
  Report Type: 
  Country: None (occurrence: None)
  Receive Date: 20120810
  Receipt Date: 20120802
  Transmission Date: 20120928
  Serious: Yes (Other)
  Sender: FDA-Public Use
  Company Number: GB-COVIDIEN/TYCO HEALTHCARE/MALLINCKRODT-T201202950

PATIENT
  Sex: Female

DRUGS (1)
  1. OPTIRAY 300 [Suspect]
     Indication: COMPUTERISED TOMOGRAM
     Dosage: 95 ML, SINGLE, FLOW RATE: 5 ML/SEC
     Route: 042
     Dates: start: 20120706, end: 20120706

REACTIONS (4)
  - URTICARIA [None]
  - HAEMOPTYSIS [None]
  - COUGH [None]
  - DYSPNOEA [None]
